FAERS Safety Report 10562234 (Version 1)
Quarter: 2014Q4

REPORT INFORMATION
  Report Type: Other
  Country: RS (occurrence: RS)
  Receive Date: 20141104
  Receipt Date: 20141104
  Transmission Date: 20150529
  Serious: Yes (Hospitalization)
  Sender: FDA-Public Use
  Company Number: RS-LUPIN PHARMACEUTICALS INC.-2014-01547

PATIENT
  Age: 6 Year
  Sex: Female

DRUGS (2)
  1. PROCAINE BENZYLPENICILLIN [Suspect]
     Active Substance: PENICILLIN G PROCAINE
     Indication: UPPER RESPIRATORY TRACT INFECTION
     Route: 030
  2. CEFTRIAXONE. [Suspect]
     Active Substance: CEFTRIAXONE
     Indication: UPPER RESPIRATORY TRACT INFECTION
     Route: 051

REACTIONS (1)
  - Toxic epidermal necrolysis [Recovered/Resolved]
